FAERS Safety Report 8043073-X (Version None)
Quarter: 2012Q1

REPORT INFORMATION
  Report Type: 
  Country: None (occurrence: None)
  Receive Date: 20120112
  Receipt Date: 20120105
  Transmission Date: 20120608
  Serious: Yes (Hospitalization)
  Sender: FDA-Public Use
  Company Number: DE-ABBOTT-11P-062-0834436-00

PATIENT
  Sex: Female
  Weight: 61 kg

DRUGS (4)
  1. METAMIZOL [Concomitant]
     Indication: CROHN'S DISEASE
     Dosage: 4X/DIE
  2. PANTOPRAZOLE SODIUM [Concomitant]
     Indication: PRODUCT USED FOR UNKNOWN INDICATION
     Dosage: BID
  3. HUMIRA [Suspect]
     Indication: CROHN'S DISEASE
     Dosage: 80 MG IN WEEK 0; 40 MG IN WEEK 2; 40 MG EOW
     Route: 058
     Dates: start: 20070918
  4. FRAXIPARIN [Concomitant]
     Indication: THROMBOSIS PROPHYLAXIS
     Dosage: OD
     Dates: start: 20101118, end: 20101126

REACTIONS (2)
  - CONSTIPATION [None]
  - COLONIC STENOSIS [None]
